FAERS Safety Report 25499334 (Version 1)
Quarter: 2025Q3

REPORT INFORMATION
  Report Type: Spontaneous
  Country: CN (occurrence: CN)
  Receive Date: 20250701
  Receipt Date: 20250701
  Transmission Date: 20251021
  Serious: Yes (Other)
  Sender: PFIZER
  Company Number: CN-PFIZER INC-PV202500077046

PATIENT
  Age: 11 Month
  Sex: Male
  Weight: 8 kg

DRUGS (3)
  1. ZITHROMAX [Suspect]
     Active Substance: AZITHROMYCIN DIHYDRATE
     Indication: Mycoplasma infection
     Dosage: 80 MG, 1X/DAY
     Route: 048
     Dates: start: 20250621, end: 20250623
  2. HERBALS\MINERALS [Suspect]
     Active Substance: HERBALS\MINERALS
     Indication: Upper respiratory tract infection
     Dosage: 5 ML, 3X/DAY
     Route: 048
     Dates: start: 20250621, end: 20250623
  3. AN KA HUANG MIN [Concomitant]
     Indication: Upper respiratory tract infection
     Dosage: 2.5 ML, 3X/DAY
     Route: 048
     Dates: start: 20250621, end: 20250623

REACTIONS (4)
  - Abdominal distension [Unknown]
  - Flatulence [Unknown]
  - Crying [Unknown]
  - Initial insomnia [Not Recovered/Not Resolved]

NARRATIVE: CASE EVENT DATE: 20250623
